FAERS Safety Report 6256892-7 (Version None)
Quarter: 2009Q3

REPORT INFORMATION
  Report Type: 
  Country: None (occurrence: None)
  Receive Date: 20090706
  Receipt Date: 20090626
  Transmission Date: 20100115
  Serious: Yes (Other)
  Sender: FDA-Public Use
  Company Number: US-JNJFOC-20090700162

PATIENT
  Sex: Female
  Weight: 63.5 kg

DRUGS (4)
  1. DURAGESIC-100 [Suspect]
     Indication: FIBROMYALGIA
     Route: 062
  2. METHADONE [Concomitant]
     Indication: PAIN
  3. PREMARIN [Concomitant]
     Indication: HORMONE LEVEL ABNORMAL
     Route: 048
  4. GABAPENTIN [Concomitant]
     Indication: PAIN
     Route: 048

REACTIONS (10)
  - CONSTIPATION [None]
  - DEPRESSION [None]
  - HYPERTENSION [None]
  - INAPPROPRIATE SCHEDULE OF DRUG ADMINISTRATION [None]
  - INSOMNIA [None]
  - IRRITABLE BOWEL SYNDROME [None]
  - MUSCLE SPASMS [None]
  - OEDEMA PERIPHERAL [None]
  - OESOPHAGEAL DISORDER [None]
  - WRONG TECHNIQUE IN DRUG USAGE PROCESS [None]
